FAERS Safety Report 25884379 (Version 1)
Quarter: 2025Q4

REPORT INFORMATION
  Report Type: Spontaneous
  Country: GB (occurrence: GB)
  Receive Date: 20251006
  Receipt Date: 20251006
  Transmission Date: 20260118
  Serious: Yes (Other)
  Sender: TEVA
  Company Number: GB-MHRA-TPP46178382C32509053YC1759161371669

PATIENT
  Age: 86 Year
  Sex: Female
  Weight: 57 kg

DRUGS (8)
  1. RAMIPRIL [Suspect]
     Active Substance: RAMIPRIL
     Indication: Product used for unknown indication
     Dosage: 2.5MG + 5MG + 10MG CAPSULES. TAKE ONE DAILY
     Route: 065
     Dates: start: 20250926
  2. ATORVASTATIN [Concomitant]
     Active Substance: ATORVASTATIN
     Indication: Blood cholesterol increased
     Dosage: ONE TABLET AT NIGHT, 1 DOSAGE FORMS DAILY
     Dates: start: 20240930
  3. AMLODIPINE [Concomitant]
     Active Substance: AMLODIPINE BESYLATE
     Indication: Ill-defined disorder
     Dosage: ONE TO BE TAKEN EACH DAY, 1 DOSAGE FORMS DAILY
     Dates: start: 20230130
  4. OMEPRAZOLE [Concomitant]
     Active Substance: OMEPRAZOLE
     Indication: Ill-defined disorder
     Dosage: TAKE ONE CAPSULE TO BE TAKEN TWICE DAILY WHEN N..., 2 DOSAGE FORMS DAILY
     Dates: start: 20230130
  5. BETAMETHASONE VALERATE [Concomitant]
     Active Substance: BETAMETHASONE VALERATE
     Indication: Ill-defined disorder
     Dosage: APPLY TWICE DAILY TO SCALP AND ALLOW TO DRY NAT..., DURATION: 29 DAYS
     Dates: start: 20250630, end: 20250728
  6. ATENOLOL [Concomitant]
     Active Substance: ATENOLOL
     Indication: Ill-defined disorder
     Dosage: ONE TO BE TAKEN DAILY, 1 DOSAGE FORMS DAILY
     Dates: start: 20230130
  7. AMITRIPTYLINE HYDROCHLORIDE [Concomitant]
     Active Substance: AMITRIPTYLINE HYDROCHLORIDE
     Indication: Pain
     Dosage: START WITH 10MG ONCE DAILY IN THE EVE..., 10 MG DAILY, DURATION : 29 DAYS
     Dates: start: 20250711, end: 20250808
  8. PROCHLORPERAZINE [Concomitant]
     Active Substance: PROCHLORPERAZINE
     Indication: Ill-defined disorder
     Dosage: ONE TO BE TAKEN TWICE OR THREE TIMES A DAY, DURATION: 2.636 YEARS
     Dates: start: 20230130, end: 20250917

REACTIONS (1)
  - Chest discomfort [Recovered/Resolved]
